FAERS Safety Report 9794523 (Version 1)
Quarter: 2014Q1

REPORT INFORMATION
  Report Type: Spontaneous
  Country: US (occurrence: US)
  Receive Date: 20140102
  Receipt Date: 20140102
  Transmission Date: 20141002
  Serious: No
  Sender: FDA-Public Use
  Company Number: US-AMGEN-USASP2013091079

PATIENT
  Age: 62 Year
  Sex: Male

DRUGS (2)
  1. ENBREL [Suspect]
     Indication: RHEUMATOID ARTHRITIS
     Dosage: 50 MG, QWK
     Route: 065
     Dates: start: 20130601
  2. METHOTREXATE [Concomitant]
     Dosage: 10 MG, QWK
     Dates: start: 2013

REACTIONS (6)
  - Erythema [Recovered/Resolved]
  - Skin lesion [Recovered/Resolved]
  - Musculoskeletal discomfort [Not Recovered/Not Resolved]
  - Pain [Recovered/Resolved]
  - Furuncle [Recovered/Resolved]
  - Bacterial infection [Recovered/Resolved]
